FAERS Safety Report 8187847-3 (Version None)
Quarter: 2012Q1

REPORT INFORMATION
  Report Type: 
  Country: None (occurrence: None)
  Receive Date: 20120221
  Receipt Date: 20110830
  Transmission Date: 20120608
  Serious: Yes (Other)
  Sender: FDA-Public Use
  Company Number: PHEH2011US03122

PATIENT
  Age: 70 Year
  Sex: Female

DRUGS (4)
  1. TOBI [Suspect]
     Dosage: 300 MG, (28 DAYS ON AND 28 DAYS OFF), INHALATION
     Route: 055
     Dates: start: 20090202
  2. CEPHALOSPORINES (NO INGREDIENTS/SUBSTANCES) [Suspect]
     Dosage: UNK UKN, UNK
  3. PULMOZYME [Concomitant]
  4. TOBRAMYCIN [Suspect]
     Dosage: INTRAVENOUS
     Route: 042

REACTIONS (2)
  - DEAFNESS [None]
  - TINNITUS [None]
